FAERS Safety Report 18964341 (Version 1)
Quarter: 2021Q1

REPORT INFORMATION
  Report Type: Spontaneous
  Country: US (occurrence: US)
  Receive Date: 20210303
  Receipt Date: 20210303
  Transmission Date: 20210420
  Serious: No
  Sender: FDA-Public Use
  Company Number: US-AMNEAL PHARMACEUTICALS-2020-AMRX-02949

PATIENT
  Age: 73 Year
  Sex: Female

DRUGS (4)
  1. RYTARY [Suspect]
     Active Substance: CARBIDOPA\LEVODOPA
     Indication: PRODUCT USED FOR UNKNOWN INDICATION
     Dosage: 13 CAPSULES, QD (3 AT 5AM, 2 AT 8AM, 2 AT 11AM, 2 AT 2PM, 2 AT 5PM, AND 2 AT 8PM)
     Route: 048
  2. RYTARY [Suspect]
     Active Substance: CARBIDOPA\LEVODOPA
     Dosage: ACCIDENTLY TAKEN HER 5PM DOSE TWICE
     Route: 048
     Dates: start: 20200722, end: 20200722
  3. RYTARY [Suspect]
     Active Substance: CARBIDOPA\LEVODOPA
     Dosage: ACCIDENTALLY TOOK A DOUBLE DOSAGE OF RYTARY
     Route: 048
     Dates: start: 20200912, end: 20200912
  4. RYTARY [Suspect]
     Active Substance: CARBIDOPA\LEVODOPA
     Dosage: 12 CAPSULES, QD (2 AT 5AM, 2 AT 8AM, 2 AT 11AM, 2 AT 2PM, 2 AT 5PM, AND 2 AT 8PM)
     Route: 048
     Dates: start: 20200404

REACTIONS (8)
  - Feeling hot [Recovered/Resolved]
  - Prescribed overdose [Unknown]
  - Agitation [Recovered/Resolved]
  - Anxiety [Recovered/Resolved]
  - Extra dose administered [Unknown]
  - Hyperhidrosis [Recovered/Resolved]
  - Dyskinesia [Recovered/Resolved]
  - Tremor [Recovered/Resolved]

NARRATIVE: CASE EVENT DATE: 2020
